FAERS Safety Report 7327405-3 (Version None)
Quarter: 2011Q1

REPORT INFORMATION
  Report Type: 
  Country: None (occurrence: None)
  Receive Date: 20110303
  Receipt Date: 20110216
  Transmission Date: 20110831
  Serious: Yes (Other)
  Sender: FDA-Public Use
  Company Number: CA-BAYER-2011-015066

PATIENT
  Age: 56 Year
  Sex: Female
  Weight: 70 kg

DRUGS (12)
  1. LOVAZA [Concomitant]
  2. CALCIUM [Concomitant]
     Dosage: UNK
  3. CYMBALTA [Concomitant]
  4. NEXIUM [Concomitant]
  5. ZOPICLONE [Concomitant]
  6. VITAMIN D [Concomitant]
  7. LYRICA [Concomitant]
  8. ASCORBIC ACID [Concomitant]
  9. RATIO-OXYCOCET [Concomitant]
  10. AVELOX [Suspect]
     Dosage: 400 MG, UNK
     Route: 048
  11. DIFLUNISAL [Concomitant]
  12. DIAZEPAM [Concomitant]

REACTIONS (5)
  - BLOOD CREATINE PHOSPHOKINASE ABNORMAL [None]
  - FALL [None]
  - RASH PRURITIC [None]
  - EXCORIATION [None]
  - RASH PUSTULAR [None]
